FAERS Safety Report 6480752-X (Version None)
Quarter: 2009Q4

REPORT INFORMATION
  Report Type: 
  Country: None (occurrence: None)
  Receive Date: 20091208
  Receipt Date: 20091126
  Transmission Date: 20100525
  Serious: Yes (Life-Threatening)
  Sender: FDA-Public Use
  Company Number: GB-BRISTOL-MYERS SQUIBB COMPANY-14883912

PATIENT
  Age: 44 Year
  Sex: Male

DRUGS (3)
  1. BLEOMYCIN SULFATE [Suspect]
     Indication: TESTICULAR SEMINOMA (PURE)
  2. CISPLATIN [Suspect]
     Indication: TESTICULAR SEMINOMA (PURE)
  3. ETOPOSIDE [Suspect]
     Indication: TESTICULAR SEMINOMA (PURE)

REACTIONS (1)
  - MYOCARDIAL INFARCTION [None]
